FAERS Safety Report 9932346 (Version 1)
Quarter: 2014Q1

REPORT INFORMATION
  Report Type: Spontaneous
  Country: US (occurrence: US)
  Receive Date: 20140228
  Receipt Date: 20140228
  Transmission Date: 20141002
  Serious: No
  Sender: FDA-Public Use
  Company Number: US-ABBVIE-14P-163-1200692-00

PATIENT
  Age: 61 Year
  Sex: Male
  Weight: 131.21 kg

DRUGS (3)
  1. ANDROGEL [Suspect]
     Indication: BLOOD TESTOSTERONE DECREASED
     Dates: start: 201312
  2. UNKNOWN MEDICATION [Concomitant]
     Indication: GASTROOESOPHAGEAL REFLUX DISEASE
  3. LEVOTHYROXINE [Concomitant]
     Indication: PRODUCT USED FOR UNKNOWN INDICATION

REACTIONS (1)
  - Paraesthesia [Not Recovered/Not Resolved]
